FAERS Safety Report 10057427 (Version 3)
Quarter: 2014Q2

REPORT INFORMATION
  Report Type: Report from Study
  Country: CA (occurrence: CA)
  Receive Date: 20140403
  Receipt Date: 20140429
  Transmission Date: 20141212
  Serious: Yes (Other)
  Sender: FDA-Public Use
  Company Number: PHHY2014CA040337

PATIENT
  Age: 27 Year
  Sex: Male

DRUGS (2)
  1. GILENYA [Suspect]
     Indication: RELAPSING-REMITTING MULTIPLE SCLEROSIS
     Dosage: 0.5 MG, DAILY
     Route: 048
     Dates: start: 20130923
  2. VIT D [Concomitant]

REACTIONS (16)
  - Convulsion [Recovered/Resolved]
  - Tremor [Unknown]
  - Tongue injury [Unknown]
  - Syncope [Recovered/Resolved]
  - Photophobia [Recovered/Resolved]
  - Pain in extremity [Unknown]
  - Eye pain [Unknown]
  - Central nervous system lesion [Unknown]
  - Somnolence [Unknown]
  - Confusional state [Unknown]
  - Sensory disturbance [Unknown]
  - Loss of consciousness [Unknown]
  - Musculoskeletal stiffness [Unknown]
  - Dyskinesia [Unknown]
  - Muscle spasms [Unknown]
  - Dizziness [Unknown]
